FAERS Safety Report 9242151 (Version 2)
Quarter: 2013Q2

REPORT INFORMATION
  Report Type: Report from Study
  Country: DE (occurrence: DE)
  Receive Date: 20130419
  Receipt Date: 20130429
  Transmission Date: 20140414
  Serious: Yes (Other)
  Sender: FDA-Public Use
  Company Number: DE-ROCHE-1215952

PATIENT
  Age: 80 Year
  Sex: Female
  Weight: 69 kg

DRUGS (2)
  1. TOCILIZUMAB [Suspect]
     Indication: RHEUMATOID ARTHRITIS
     Route: 042
     Dates: start: 20130301
  2. TOCILIZUMAB [Suspect]
     Route: 042
     Dates: start: 20130415

REACTIONS (1)
  - Skin ulcer [Recovered/Resolved]
